FAERS Safety Report 19777709 (Version 1)
Quarter: 2021Q3

REPORT INFORMATION
  Report Type: Report from Study
  Country: CA (occurrence: CA)
  Receive Date: 20210902
  Receipt Date: 20210902
  Transmission Date: 20211014
  Serious: Yes (Other)
  Sender: FDA-Public Use
  Company Number: CA-ACCORD-236560

PATIENT
  Age: 55 Year
  Sex: Male
  Weight: 79 kg

DRUGS (17)
  1. TEMOZOLOMIDE. [Suspect]
     Active Substance: TEMOZOLOMIDE
     Indication: GLIOBLASTOMA
     Route: 048
  2. NYSTATIN. [Concomitant]
     Active Substance: NYSTATIN
  3. KEPPRA [Concomitant]
     Active Substance: LEVETIRACETAM
  4. TINZAPARIN [Concomitant]
     Active Substance: TINZAPARIN
  5. AMLODIPINE [Concomitant]
     Active Substance: AMLODIPINE BESYLATE
  6. DECADRON [Concomitant]
     Active Substance: DEXAMETHASONE
  7. GLYBURIDE. [Concomitant]
     Active Substance: GLYBURIDE
  8. METFORMIN [Concomitant]
     Active Substance: METFORMIN HYDROCHLORIDE
  9. ONDANSETRON [Concomitant]
     Active Substance: ONDANSETRON
  10. DALTEPARIN [Suspect]
     Active Substance: DALTEPARIN
     Indication: GLIOBLASTOMA
     Route: 065
  11. ACETYLSALICYLIC ACID [Concomitant]
     Active Substance: ASPIRIN
  12. COLACE [Concomitant]
     Active Substance: DOCUSATE SODIUM
  13. PANTOPRAZOLE [Concomitant]
     Active Substance: PANTOPRAZOLE
  14. ATORVASTATIN [Concomitant]
     Active Substance: ATORVASTATIN
  15. DILANTIN [Concomitant]
     Active Substance: PHENYTOIN
  16. ZOPICLONE [Concomitant]
     Active Substance: ZOPICLONE
  17. ALFUZOSIN [Concomitant]
     Active Substance: ALFUZOSIN

REACTIONS (1)
  - Haemorrhage intracranial [Recovered/Resolved]
